FAERS Safety Report 5063473-X (Version None)
Quarter: 2006Q3

REPORT INFORMATION
  Report Type: 
  Country: None (occurrence: None)
  Receive Date: 20060727
  Receipt Date: 20060719
  Transmission Date: 20061208
  Serious: Yes (Hospitalization)
  Sender: FDA-Public Use
  Company Number: JP-JPN-A200602715

PATIENT
  Age: 75 Year
  Sex: Female
  Weight: 57 kg

DRUGS (9)
  1. PAXIL [Suspect]
     Indication: DEPRESSION
     Dosage: 10MG PER DAY
     Route: 048
     Dates: start: 20051130, end: 20060630
  2. DEPAS [Concomitant]
     Indication: DEPRESSION
     Route: 048
     Dates: start: 20051130
  3. BLOPRESS [Concomitant]
     Indication: HYPERTENSION
     Route: 048
     Dates: start: 20051028
  4. SENNOSIDE [Concomitant]
     Indication: CONSTIPATION
     Route: 048
     Dates: start: 20060327
  5. URSO [Concomitant]
     Indication: HEPATITIS C
     Route: 048
     Dates: start: 20051018
  6. ADOFEED [Concomitant]
     Indication: OSTEOARTHRITIS
     Route: 062
     Dates: start: 20060403
  7. MOHRUS TAPE [Concomitant]
     Indication: ARTHRALGIA
     Route: 062
     Dates: start: 20060403
  8. NEO-MINOPHAGEN-C [Concomitant]
     Indication: HEPATITIS C
     Dosage: 40ML PER DAY
     Route: 042
     Dates: start: 20060327
  9. PERDIPINE [Concomitant]
     Indication: HYPERTENSION
     Route: 042
     Dates: start: 20060629, end: 20060629

REACTIONS (6)
  - ABDOMINAL PAIN LOWER [None]
  - BLOOD PRESSURE INCREASED [None]
  - CALCULUS URETERIC [None]
  - DYSURIA [None]
  - HYDRONEPHROSIS [None]
  - URINARY RETENTION [None]
